FAERS Safety Report 21408336 (Version 1)
Quarter: 2022Q4

REPORT INFORMATION
  Report Type: Spontaneous
  Country: US (occurrence: None)
  Receive Date: 20221004
  Receipt Date: 20221004
  Transmission Date: 20230113
  Serious: Yes (Hospitalization, Other)
  Sender: FDA-Public Use
  Company Number: None

PATIENT
  Age: 84 Year
  Sex: Male
  Weight: 89.81 kg

DRUGS (1)
  1. REPATHA [Suspect]
     Active Substance: EVOLOCUMAB
     Indication: Low density lipoprotein increased
     Dosage: FREQUENCY : MONTHLY;?
     Route: 058
     Dates: start: 20220608, end: 20220705

REACTIONS (4)
  - Transient ischaemic attack [None]
  - Optic nerve injury [None]
  - Hallucination, visual [None]
  - Ophthalmic migraine [None]

NARRATIVE: CASE EVENT DATE: 20220616
